FAERS Safety Report 24982855 (Version 1)
Quarter: 2025Q1

REPORT INFORMATION
  Report Type: Spontaneous
  Country: TH (occurrence: TH)
  Receive Date: 20250218
  Receipt Date: 20250218
  Transmission Date: 20250409
  Serious: Yes (Hospitalization)
  Sender: PFIZER
  Company Number: TH-PFIZER INC-PV202500019084

PATIENT
  Age: 72 Year
  Sex: Female

DRUGS (2)
  1. LORLATINIB [Suspect]
     Active Substance: LORLATINIB
     Indication: Non-small cell lung cancer
     Dosage: 100 MG (1 TAB) 1 TIME A DAY
     Route: 048
     Dates: start: 20250128, end: 20250130
  2. LORLATINIB [Suspect]
     Active Substance: LORLATINIB
     Dosage: 75 MG (25 MG 3 TABS) ONCE A DAY
     Route: 048
     Dates: start: 20250211

REACTIONS (1)
  - Hallucination [Recovering/Resolving]

NARRATIVE: CASE EVENT DATE: 20250128
